FAERS Safety Report 15376118 (Version 1)
Quarter: 2018Q3

REPORT INFORMATION
  Report Type: Spontaneous
  Country: US (occurrence: US)
  Receive Date: 20180912
  Receipt Date: 20180912
  Transmission Date: 20181010
  Serious: No
  Sender: FDA-Public Use
  Company Number: US-KOWA-18US000250

PATIENT

DRUGS (2)
  1. ZETIA [Concomitant]
     Active Substance: EZETIMIBE
     Indication: BLOOD CHOLESTEROL
     Dosage: 10 MG
     Dates: start: 2016
  2. LIVALO [Suspect]
     Active Substance: PITAVASTATIN CALCIUM
     Indication: BLOOD CHOLESTEROL
     Dosage: 2 MG, QD
     Dates: start: 201708

REACTIONS (3)
  - Back pain [Unknown]
  - Drug ineffective [Unknown]
  - Pain in extremity [Unknown]
